FAERS Safety Report 9702336 (Version 1)
Quarter: 2013Q4

REPORT INFORMATION
  Report Type: Spontaneous
  Country: GB (occurrence: GB)
  Receive Date: 20131121
  Receipt Date: 20131121
  Transmission Date: 20140711
  Serious: Yes (Death)
  Sender: FDA-Public Use
  Company Number: GB-TEVA-445715ISR

PATIENT
  Sex: 0

DRUGS (1)
  1. MIRTAZAPINE [Suspect]
     Indication: ANXIETY
     Route: 064

REACTIONS (1)
  - Stillbirth [Fatal]
